FAERS Safety Report 19042831 (Version 1)
Quarter: 2021Q1

REPORT INFORMATION
  Report Type: Spontaneous
  Country: FR (occurrence: CA)
  Receive Date: 20210323
  Receipt Date: 20210323
  Transmission Date: 20210420
  Serious: Yes (Death, Other)
  Sender: FDA-Public Use
  Company Number: FR-SUN PHARMACEUTICAL INDUSTRIES LTD-2021R1-286965

PATIENT
  Age: 9 Year
  Sex: Male

DRUGS (9)
  1. CLONAZEPAM. [Suspect]
     Active Substance: CLONAZEPAM
     Indication: CEREBRAL PALSY
     Dosage: UNK
     Route: 065
  2. VALPROIC ACID. [Suspect]
     Active Substance: VALPROIC ACID
     Indication: QUADRIPLEGIA
  3. BOTOX [Suspect]
     Active Substance: ONABOTULINUMTOXINA
     Indication: QUADRIPLEGIA
  4. CLONAZEPAM. [Suspect]
     Active Substance: CLONAZEPAM
     Indication: QUADRIPLEGIA
  5. CLONAZEPAM. [Suspect]
     Active Substance: CLONAZEPAM
     Indication: MENINGOENCEPHALITIS HERPETIC
  6. VALPROIC ACID. [Suspect]
     Active Substance: VALPROIC ACID
     Indication: CEREBRAL PALSY
     Dosage: UNK
     Route: 065
  7. BOTOX [Suspect]
     Active Substance: ONABOTULINUMTOXINA
     Indication: MENINGOENCEPHALITIS HERPETIC
  8. VALPROIC ACID. [Suspect]
     Active Substance: VALPROIC ACID
     Indication: MENINGOENCEPHALITIS HERPETIC
  9. BOTOX [Suspect]
     Active Substance: ONABOTULINUMTOXINA
     Indication: CEREBRAL PALSY
     Dosage: UNK
     Route: 065

REACTIONS (2)
  - Lethargy [Fatal]
  - Respiratory failure [Fatal]
